FAERS Safety Report 16458978 (Version 1)
Quarter: 2019Q2

REPORT INFORMATION
  Report Type: Spontaneous
  Country: US (occurrence: US)
  Receive Date: 20190620
  Receipt Date: 20190620
  Transmission Date: 20190711
  Serious: No
  Sender: FDA-Public Use
  Company Number: US-THERAPEUTICSMD-2019TMD01092

PATIENT
  Sex: Female
  Weight: 89.8 kg

DRUGS (7)
  1. IMVEXXY [Suspect]
     Active Substance: ESTRADIOL
     Indication: VULVOVAGINAL DRYNESS
     Dosage: 10 ?G, 2X/WEEK BEFORE BED
     Route: 067
     Dates: end: 20190516
  2. VALSARTAN. [Concomitant]
     Active Substance: VALSARTAN
     Dosage: 80 MG, 1X/DAY
  3. MAGNESIUM [Concomitant]
     Active Substance: MAGNESIUM
  4. BIOTIN [Concomitant]
     Active Substance: BIOTIN
  5. TRIAMTERENE/ HCTZ [Concomitant]
  6. VITAMIN D [Concomitant]
     Active Substance: VITAMIN D NOS
  7. LOW DOSE ASPIRIN [Concomitant]
     Active Substance: ASPIRIN

REACTIONS (9)
  - Feeling hot [Not Recovered/Not Resolved]
  - Dizziness [Recovering/Resolving]
  - Asthenia [Recovering/Resolving]
  - Balance disorder [Recovering/Resolving]
  - Tinnitus [Recovered/Resolved]
  - Performance status decreased [Recovering/Resolving]
  - Fatigue [Recovering/Resolving]
  - Feeling abnormal [Recovered/Resolved]
  - Off label use [Recovered/Resolved]

NARRATIVE: CASE EVENT DATE: 2019
